FAERS Safety Report 9117456 (Version 1)
Quarter: 2013Q1

REPORT INFORMATION
  Report Type: Spontaneous
  Country: GB (occurrence: GB)
  Receive Date: 20130225
  Receipt Date: 20130225
  Transmission Date: 20140127
  Serious: Yes (Disabling, Other)
  Sender: FDA-Public Use
  Company Number: GB-BIOGENIDEC-2013BI017816

PATIENT
  Age: 35 Year
  Sex: Female

DRUGS (3)
  1. TYSABRI [Suspect]
     Indication: MULTIPLE SCLEROSIS
     Route: 042
     Dates: start: 2011
  2. CLONAZEPAM [Concomitant]
     Indication: MUSCLE SPASTICITY
  3. GABAPENTIN [Concomitant]
     Indication: SENSORY DISTURBANCE

REACTIONS (2)
  - Infection reactivation [Not Recovered/Not Resolved]
  - Herpes zoster [Not Recovered/Not Resolved]
